FAERS Safety Report 5575672-9 (Version None)
Quarter: 2007Q4

REPORT INFORMATION
  Report Type: 
  Country: None (occurrence: None)
  Receive Date: 20071221
  Receipt Date: 20071210
  Transmission Date: 20080405
  Serious: Yes (Hospitalization)
  Sender: FDA-Public Use
  Company Number: MEDI-0006291

PATIENT
  Age: 8 Month
  Sex: Female
  Weight: 4.1 kg

DRUGS (1)
  1. SYNAGIS [Suspect]
     Indication: PROPHYLAXIS
     Dates: start: 20071112, end: 20071112

REACTIONS (1)
  - BRONCHIOLITIS [None]
